FAERS Safety Report 10360379 (Version 1)
Quarter: 2014Q3

REPORT INFORMATION
  Report Type: Spontaneous
  Country: NL (occurrence: NL)
  Receive Date: 20140804
  Receipt Date: 20140804
  Transmission Date: 20150326
  Serious: Yes (Hospitalization, Other)
  Sender: FDA-Public Use
  Company Number: NL-MERCK-1407NLD013575

PATIENT
  Sex: Male

DRUGS (4)
  1. CIPRAMIL [Interacting]
     Active Substance: CITALOPRAM HYDROBROMIDE
     Indication: DEPRESSED MOOD
     Dosage: 40MG
     Route: 048
  2. REMERON [Suspect]
     Active Substance: MIRTAZAPINE
     Indication: DEPRESSED MOOD
     Dosage: 45MG,START / STOP DATE NOT REPORTED
     Route: 048
  3. MIZOLLEN [Interacting]
     Active Substance: MIZOLASTINE
     Indication: PRODUCT USED FOR UNKNOWN INDICATION
     Dosage: 2 TABLETS A DAY,START / STOP DATE NOT REPORTED
     Route: 048
  4. IMIGRAN (SUMATRIPTAN SUCCINATE) [Interacting]
     Active Substance: SUMATRIPTAN SUCCINATE
     Indication: CLUSTER HEADACHE
     Dosage: DOSE NOT REPORTED,START / STOP DATE NOT REPORTED
     Route: 058

REACTIONS (11)
  - Dystonia [Recovered/Resolved]
  - Dysarthria [Recovered/Resolved]
  - Apathy [Recovered/Resolved]
  - Eyelid ptosis [None]
  - Mydriasis [Recovered/Resolved]
  - Drug interaction [Recovered/Resolved]
  - Convulsion [Recovered/Resolved]
  - Feeling abnormal [Recovered/Resolved]
  - Blood pressure increased [None]
  - Hyperhidrosis [Recovered/Resolved]
  - Anxiety [Recovered/Resolved]

NARRATIVE: CASE EVENT DATE: 2008
